FAERS Safety Report 8776817 (Version 1)
Quarter: 2012Q4

REPORT INFORMATION
  Report Type: 
  Country: CA (occurrence: CA)
  Receive Date: 20120906
  Receipt Date: 20120906
  Transmission Date: 20130627
  Serious: Yes (Death)
  Sender: FDA-Public Use
  Company Number: CA-ELI_LILLY_AND_COMPANY-CA201209000493

PATIENT
  Age: 79 Year
  Sex: Female

DRUGS (8)
  1. FORTEO [Suspect]
     Indication: OSTEOPOROSIS
     Dosage: 20 ug, qd
     Route: 058
     Dates: start: 20110920, end: 20120818
  2. ATIVAN [Concomitant]
  3. PANTOPRAZOLE [Concomitant]
  4. FUROSEMIDE [Concomitant]
  5. RISPERIDON [Concomitant]
  6. AMLODIPINE [Concomitant]
  7. LIPITOR [Concomitant]
  8. ARICEPT [Concomitant]

REACTIONS (1)
  - Cardio-respiratory arrest [Fatal]
